FAERS Safety Report 16376596 (Version 1)
Quarter: 2019Q2

REPORT INFORMATION
  Report Type: Spontaneous
  Country: DE (occurrence: DE)
  Receive Date: 20190531
  Receipt Date: 20190531
  Transmission Date: 20190711
  Serious: Yes (Death, Other)
  Sender: FDA-Public Use
  Company Number: DE-TEVA-2019-DE-1056169

PATIENT
  Age: 70 Year
  Sex: Male

DRUGS (6)
  1. SEROQUEL [Interacting]
     Active Substance: QUETIAPINE FUMARATE
     Dosage: SLOWLY ADDED UP FROM 13.12.2008
     Dates: start: 20081222
  2. REMERGIL [Interacting]
     Active Substance: MIRTAZAPINE
     Dates: start: 20081224
  3. DIAZEPAM. [Suspect]
     Active Substance: DIAZEPAM
  4. CIPRALEX [Interacting]
     Active Substance: ESCITALOPRAM OXALATE
     Dates: start: 20081224
  5. ERGENYL CHRONO [Interacting]
     Active Substance: VALPROIC ACID
     Dates: start: 20081213
  6. HALDOL [Interacting]
     Active Substance: HALOPERIDOL
     Dates: start: 20081204

REACTIONS (2)
  - Drug interaction [Unknown]
  - Death [Fatal]

NARRATIVE: CASE EVENT DATE: 20090107
